FAERS Safety Report 17466108 (Version 1)
Quarter: 2020Q1

REPORT INFORMATION
  Report Type: Report from Study
  Country: KR (occurrence: KR)
  Receive Date: 20200227
  Receipt Date: 20200227
  Transmission Date: 20200409
  Serious: Yes (Hospitalization)
  Sender: FDA-Public Use
  Company Number: KR-ROCHE-2554181

PATIENT
  Age: 53 Year
  Sex: Male
  Weight: 64.6 kg

DRUGS (28)
  1. VINCRISTINE [Suspect]
     Active Substance: VINCRISTINE
     Dosage: FREQUENCY 1
     Route: 042
     Dates: start: 20190916, end: 20190916
  2. PREDNISONE. [Suspect]
     Active Substance: PREDNISONE
     Indication: NON-HODGKIN^S LYMPHOMA
     Dosage: FREQUENCY 2
     Route: 048
     Dates: start: 20190617, end: 20190617
  3. PREDNISONE. [Suspect]
     Active Substance: PREDNISONE
     Dosage: FREQUENCY 2
     Route: 048
     Dates: start: 20190708, end: 20190712
  4. CYCLOPHOSPHAMIDE. [Suspect]
     Active Substance: CYCLOPHOSPHAMIDE
     Dosage: FREQUENCY 1
     Route: 042
     Dates: start: 20190708, end: 20190708
  5. CYCLOPHOSPHAMIDE. [Suspect]
     Active Substance: CYCLOPHOSPHAMIDE
     Dosage: FREQUENCY 1
     Route: 042
     Dates: start: 20191016, end: 20191016
  6. VINCRISTINE [Suspect]
     Active Substance: VINCRISTINE
     Dosage: FREQUENCY 1
     Route: 042
     Dates: start: 20191016, end: 20191016
  7. PREDNISONE. [Suspect]
     Active Substance: PREDNISONE
     Dosage: FREQUENCY 2
     Route: 048
     Dates: start: 20190916, end: 20190920
  8. RITUXIMAB. [Suspect]
     Active Substance: RITUXIMAB
     Indication: NON-HODGKIN^S LYMPHOMA
     Route: 042
     Dates: start: 20190524, end: 20190524
  9. DOXORUBICIN [Suspect]
     Active Substance: DOXORUBICIN
     Dosage: FREQUENCY 1
     Route: 042
     Dates: start: 20190801, end: 20190801
  10. DOXORUBICIN [Suspect]
     Active Substance: DOXORUBICIN
     Dosage: FREQUENCY 1
     Route: 042
     Dates: start: 20191016, end: 20191016
  11. RITUXIMAB. [Suspect]
     Active Substance: RITUXIMAB
     Indication: NON-HODGKIN^S LYMPHOMA
     Route: 058
     Dates: start: 20190617, end: 20190617
  12. RITUXIMAB. [Suspect]
     Active Substance: RITUXIMAB
     Route: 058
     Dates: start: 20190916, end: 20190916
  13. CYCLOPHOSPHAMIDE. [Suspect]
     Active Substance: CYCLOPHOSPHAMIDE
     Indication: NON-HODGKIN^S LYMPHOMA
     Dosage: FREQUENCY 1
     Route: 042
     Dates: start: 20190617, end: 20190617
  14. DOXORUBICIN [Suspect]
     Active Substance: DOXORUBICIN
     Dosage: FREQUENCY 1
     Route: 042
     Dates: start: 20190708, end: 20190708
  15. PREDNISONE. [Suspect]
     Active Substance: PREDNISONE
     Dosage: FREQUENCY 2
     Route: 048
     Dates: start: 20191016, end: 20191020
  16. CYCLOPHOSPHAMIDE. [Suspect]
     Active Substance: CYCLOPHOSPHAMIDE
     Dosage: FREQUENCY 1
     Route: 042
     Dates: start: 20190916, end: 20190916
  17. DOXORUBICIN [Suspect]
     Active Substance: DOXORUBICIN
     Dosage: FREQUENCY 1
     Route: 042
     Dates: start: 20190916, end: 20190916
  18. TYLENOL [Concomitant]
     Active Substance: ACETAMINOPHEN
     Indication: CHEMOTHERAPY
     Dosage: FREQUENCY PNR
     Route: 048
     Dates: start: 20190611, end: 20191016
  19. RITUXIMAB. [Suspect]
     Active Substance: RITUXIMAB
     Route: 058
     Dates: start: 20190801, end: 20190801
  20. CYCLOPHOSPHAMIDE. [Suspect]
     Active Substance: CYCLOPHOSPHAMIDE
     Dosage: FREQUENCY 1
     Route: 042
     Dates: start: 20190801, end: 20190801
  21. VINCRISTINE [Suspect]
     Active Substance: VINCRISTINE
     Indication: NON-HODGKIN^S LYMPHOMA
     Dosage: FREQUENCY 1
     Route: 042
     Dates: start: 20190617, end: 20190617
  22. VINCRISTINE [Suspect]
     Active Substance: VINCRISTINE
     Dosage: FREQUENCY 1
     Route: 042
     Dates: start: 20190708, end: 20190708
  23. VINCRISTINE [Suspect]
     Active Substance: VINCRISTINE
     Dosage: FREQUENCY 1
     Route: 042
     Dates: start: 20190801, end: 20190801
  24. RITUXIMAB. [Suspect]
     Active Substance: RITUXIMAB
     Route: 058
     Dates: start: 20190708, end: 20190708
  25. RITUXIMAB. [Suspect]
     Active Substance: RITUXIMAB
     Route: 058
     Dates: start: 20191016, end: 20191016
  26. DOXORUBICIN [Suspect]
     Active Substance: DOXORUBICIN
     Indication: NON-HODGKIN^S LYMPHOMA
     Dosage: FREQUENCY 1
     Route: 042
     Dates: start: 20190617, end: 20190617
  27. PREDNISONE. [Suspect]
     Active Substance: PREDNISONE
     Dosage: FREQUENCY 2
     Route: 048
     Dates: start: 20190801, end: 20190805
  28. PHENIRAMINE [Concomitant]
     Active Substance: PHENIRAMINE
     Indication: CHEMOTHERAPY
     Dosage: FREQUENCY PNR
     Route: 042
     Dates: start: 20190611, end: 20191016

REACTIONS (1)
  - Pneumothorax [Recovered/Resolved]

NARRATIVE: CASE EVENT DATE: 20190825
